FAERS Safety Report 20778578 (Version 2)
Quarter: 2022Q2

REPORT INFORMATION
  Report Type: Spontaneous
  Country: AT (occurrence: AT)
  Receive Date: 20220503
  Receipt Date: 20220510
  Transmission Date: 20220720
  Serious: Yes (Hospitalization)
  Sender: FDA-Public Use
  Company Number: AT-NOVARTISPH-NVSC2022AT095760

PATIENT
  Age: 82 Year

DRUGS (2)
  1. ATORVASTATIN [Suspect]
     Active Substance: ATORVASTATIN
     Indication: Blood cholesterol increased
     Dosage: UNK(2X/WEEK)
     Route: 065
     Dates: start: 2020
  2. CANDESARTAN [Concomitant]
     Active Substance: CANDESARTAN
     Indication: Hypertension
     Dosage: 1X/DAY
     Route: 065
     Dates: start: 2020

REACTIONS (8)
  - Diarrhoea [Recovered/Resolved]
  - Gluten sensitivity [Unknown]
  - Nausea [Not Recovered/Not Resolved]
  - Blood cholesterol decreased [Unknown]
  - Lymphadenopathy [Unknown]
  - Vomiting [Unknown]
  - Coeliac disease [Unknown]
  - Fear of death [Unknown]

NARRATIVE: CASE EVENT DATE: 20210427
